FAERS Safety Report 13752014 (Version 3)
Quarter: 2017Q3

REPORT INFORMATION
  Report Type: Spontaneous
  Country: CH (occurrence: CH)
  Receive Date: 20170713
  Receipt Date: 20170818
  Transmission Date: 20171127
  Serious: Yes (Other)
  Sender: FDA-Public Use
  Company Number: CH-PFIZER INC-2017295411

PATIENT
  Age: 71 Year
  Sex: Female

DRUGS (15)
  1. REBALANCE [Concomitant]
     Active Substance: HYPERICUM PERFORATUM
     Dosage: 500 MG, UNK
     Dates: start: 20161228, end: 20161229
  2. NOVALGIN [Concomitant]
     Active Substance: METAMIZOLE SODIUM
     Dosage: UNK
  3. TEMESTA [Suspect]
     Active Substance: LORAZEPAM
     Dosage: 0.5 MG, UNK
     Dates: start: 20161228, end: 20161229
  4. TEMESTA [Suspect]
     Active Substance: LORAZEPAM
     Dosage: 0.5 MG, UNK
     Dates: start: 20170114, end: 20170120
  5. SEQUASE [Suspect]
     Active Substance: QUETIAPINE FUMARATE
     Dosage: 25 MG, UNK
     Dates: start: 20161229, end: 20161230
  6. SERALIN MEPHA [Suspect]
     Active Substance: SERTRALINE HYDROCHLORIDE
     Dosage: 50 MG,UNK
     Dates: start: 20161228, end: 20170113
  7. SERALIN MEPHA [Suspect]
     Active Substance: SERTRALINE HYDROCHLORIDE
     Dosage: 25 MG, UNK
     Dates: start: 20170114, end: 20170120
  8. TEMESTA [Suspect]
     Active Substance: LORAZEPAM
     Dosage: 1 MG, UNK
     Dates: start: 20161229, end: 20170106
  9. SEQUASE [Suspect]
     Active Substance: QUETIAPINE FUMARATE
     Dosage: 25 MG, UNK
     Dates: end: 20170112
  10. HUMULUS LUPULUS EXTRACT/VALERIAN ROOT [Concomitant]
     Active Substance: HERBALS\HOPS\VALERIAN
     Dosage: UNK
  11. LISINOPRIL. [Suspect]
     Active Substance: LISINOPRIL
     Dosage: 10 MG, UNK
     Dates: start: 20161228, end: 20170120
  12. APHENYLBARBIT /00023201/ [Suspect]
     Active Substance: PHENOBARBITAL
     Dosage: 50 MG, UNK
     Dates: start: 20161228, end: 20170120
  13. TEMESTA [Suspect]
     Active Substance: LORAZEPAM
     Dosage: 0.75 MG, UNK
     Dates: start: 20170107, end: 20170113
  14. BILOL [Suspect]
     Active Substance: BISOPROLOL
     Dosage: 2.5 MG, UNK
     Dates: start: 20161228, end: 20170120
  15. SEQUASE [Suspect]
     Active Substance: QUETIAPINE FUMARATE
     Dosage: 50 MG, UNK
     Dates: start: 20161231, end: 20170102

REACTIONS (2)
  - Hyponatraemia [Unknown]
  - Transaminases increased [Unknown]

NARRATIVE: CASE EVENT DATE: 2017
